FAERS Safety Report 6700125-1 (Version None)
Quarter: 2010Q2

REPORT INFORMATION
  Report Type: 
  Country: None (occurrence: None)
  Receive Date: 20100423
  Receipt Date: 20091116
  Transmission Date: 20101027
  Serious: No
  Sender: FDA-Public Use
  Company Number: 2009UF0252

PATIENT
  Age: 9 Year
  Sex: Female
  Weight: 31.2982 kg

DRUGS (2)
  1. ULESFIA [Suspect]
     Indication: LICE INFESTATION
     Dosage: 1 BOTTLE, ONCE 2 BOTTLES, ONCE
     Dates: start: 20091106, end: 20091106
  2. ULESFIA [Suspect]
     Indication: LICE INFESTATION
     Dates: start: 20091113, end: 20091113

REACTIONS (3)
  - DANDRUFF [None]
  - DRUG ADMINISTRATION ERROR [None]
  - DRUG INEFFECTIVE [None]
